FAERS Safety Report 8262481 (Version 3)
Quarter: 2013Q4

REPORT INFORMATION
  Report Type: Spontaneous
  Country: DE (occurrence: DE)
  Receive Date: 20111124
  Receipt Date: 20131111
  Transmission Date: 20140711
  Serious: Yes (Hospitalization)
  Sender: FDA-Public Use
  Company Number: DE-BIOGENIDEC-2011BI043945

PATIENT
  Age: 36 Year
  Sex: Female
  Weight: 100 kg

DRUGS (5)
  1. TYSABRI [Suspect]
     Indication: MULTIPLE SCLEROSIS
     Route: 042
     Dates: start: 20090707, end: 20110915
  2. FAMPYRA [Concomitant]
     Indication: GAIT DISTURBANCE
     Route: 048
     Dates: start: 201109, end: 201109
  3. LYRICA [Concomitant]
     Indication: PARAESTHESIA
     Dates: start: 201106, end: 201109
  4. LYRICA [Concomitant]
     Indication: NEURALGIA
     Dates: start: 201106, end: 201109
  5. AZATHIOPRIN [Concomitant]
     Indication: AUTOIMMUNE HEPATITIS

REACTIONS (2)
  - Drug-induced liver injury [Recovered/Resolved]
  - Multiple sclerosis relapse [Recovered/Resolved]
